FAERS Safety Report 7800087-X (Version None)
Quarter: 2011Q4

REPORT INFORMATION
  Report Type: 
  Country: None (occurrence: None)
  Receive Date: 20111006
  Receipt Date: 20110927
  Transmission Date: 20120403
  Serious: Yes (Hospitalization)
  Sender: FDA-Public Use
  Company Number: FR-ASTRAZENECA-2011SE58346

PATIENT
  Age: 81 Year
  Sex: Male
  Weight: 65 kg

DRUGS (7)
  1. ALLOPURINOL [Concomitant]
     Route: 048
  2. AMLODIPINE BESYLATE [Concomitant]
     Route: 048
  3. CRESTOR [Suspect]
     Indication: DYSLIPIDAEMIA
     Route: 048
     Dates: start: 20110701, end: 20110801
  4. TENORMIN [Concomitant]
     Route: 048
  5. PRAZOSIN HCL [Concomitant]
     Route: 048
  6. PERINDOPRIL ERBUMINE [Concomitant]
     Route: 048
  7. PREVISCAN [Concomitant]
     Route: 048

REACTIONS (6)
  - OEDEMA PERIPHERAL [None]
  - MYALGIA [None]
  - CARDIAC FAILURE [None]
  - PLEURAL EFFUSION [None]
  - GENERALISED OEDEMA [None]
  - ASCITES [None]
